FAERS Safety Report 8718759 (Version 3)
Quarter: 2014Q1

REPORT INFORMATION
  Report Type: Spontaneous
  Country: US (occurrence: US)
  Receive Date: 20120810
  Receipt Date: 20140314
  Transmission Date: 20141002
  Serious: No
  Sender: FDA-Public Use
  Company Number: US-ASTRAZENECA-2011SE66776

PATIENT
  Age: 84 Year
  Sex: Female

DRUGS (3)
  1. ARIMIDEX [Suspect]
     Route: 048
  2. ARIMIDEX [Suspect]
     Route: 048
  3. ARIMIDEX [Suspect]
     Route: 048

REACTIONS (7)
  - Crying [Unknown]
  - Influenza [Unknown]
  - Visual impairment [Unknown]
  - Hypoacusis [Not Recovered/Not Resolved]
  - Mental impairment [Unknown]
  - Emotional disorder [Unknown]
  - Depression [Unknown]
